FAERS Safety Report 12609967 (Version 1)
Quarter: 2016Q3

REPORT INFORMATION
  Report Type: Spontaneous
  Country: US (occurrence: US)
  Receive Date: 20160801
  Receipt Date: 20160801
  Transmission Date: 20161109
  Serious: No
  Sender: FDA-Public Use
  Company Number: US-009507513-1607USA011008

PATIENT
  Age: 50 Year
  Sex: Male

DRUGS (6)
  1. TRAZODONE HYDROCHLORIDE. [Concomitant]
     Active Substance: TRAZODONE HYDROCHLORIDE
     Dosage: UNSPECIFIED DOSE, AS NEEDED
     Route: 048
     Dates: start: 2011
  2. BENZTROPINE MESYLATE. [Concomitant]
     Active Substance: BENZTROPINE MESYLATE
     Indication: MUSCLE RELAXANT THERAPY
     Dosage: 2 MG, 2 TABLETS AT NIGHT
     Route: 048
     Dates: start: 2011
  3. SEROQUEL [Concomitant]
     Active Substance: QUETIAPINE FUMARATE
     Dosage: 400 MG, ONE TABLET AT NOON AND ONE AT BEDTIME
     Route: 048
     Dates: start: 2011
  4. HALOPERIDOL. [Concomitant]
     Active Substance: HALOPERIDOL
     Indication: SCHIZOPHRENIA
     Dosage: 10 MG, 10 MG AT NIGHT
     Dates: start: 2011
  5. BELSOMRA [Suspect]
     Active Substance: SUVOREXANT
     Indication: INSOMNIA
     Dosage: 20 MG, ONE TABLET DAILY
     Route: 048
     Dates: start: 20160509
  6. QUETIAPINE FUMARATE. [Concomitant]
     Active Substance: QUETIAPINE FUMARATE
     Dosage: 400 MG, ONE TABLET AT NIGHT
     Route: 048
     Dates: start: 2011

REACTIONS (1)
  - Therapeutic response unexpected [Unknown]

NARRATIVE: CASE EVENT DATE: 20160509
